FAERS Safety Report 4843015-1 (Version None)
Quarter: 2005Q4

REPORT INFORMATION
  Report Type: 
  Country: None (occurrence: None)
  Receive Date: 20051130
  Receipt Date: 20051121
  Transmission Date: 20060501
  Serious: Yes (Other)
  Sender: FDA-Public Use
  Company Number: B0401697A

PATIENT
  Age: 43 Year
  Sex: Female

DRUGS (3)
  1. LAMICTAL [Suspect]
     Indication: EPILEPSY
     Dosage: SEE DOSAGE TEXT
     Dates: start: 20021001
  2. CARBAMAZEPINE [Concomitant]
  3. HALOPERIDOL [Concomitant]

REACTIONS (8)
  - ABNORMAL BEHAVIOUR [None]
  - ELECTROENCEPHALOGRAM ABNORMAL [None]
  - HALLUCINATION [None]
  - INSOMNIA [None]
  - IRRITABILITY [None]
  - MEMORY IMPAIRMENT [None]
  - PARANOIA [None]
  - REFUSAL OF TREATMENT BY PATIENT [None]
